FAERS Safety Report 25414382 (Version 1)
Quarter: 2025Q2

REPORT INFORMATION
  Report Type: Spontaneous
  Country: US (occurrence: US)
  Receive Date: 20250609
  Receipt Date: 20250609
  Transmission Date: 20250717
  Serious: No
  Sender: SANOFI AVENTIS
  Company Number: US-SA-2025SA161558

PATIENT
  Age: 23 Year
  Sex: Female

DRUGS (7)
  1. DUPIXENT [Suspect]
     Active Substance: DUPILUMAB
     Indication: Dermatitis atopic
     Dosage: 300 MG, QOW
     Route: 058
     Dates: start: 20240730
  2. DULOXETINE [Concomitant]
     Active Substance: DULOXETINE
  3. DULOXETINE [Concomitant]
     Active Substance: DULOXETINE
  4. DULOXETINE [Concomitant]
     Active Substance: DULOXETINE
  5. PREDNISONE [Concomitant]
     Active Substance: PREDNISONE
  6. STRATTERA [Concomitant]
     Active Substance: ATOMOXETINE HYDROCHLORIDE
  7. APAP/CODEINE PHOSPHATE [Concomitant]

REACTIONS (4)
  - Sleep disorder due to a general medical condition [Unknown]
  - Dermatitis atopic [Unknown]
  - Rash [Unknown]
  - Discomfort [Unknown]

NARRATIVE: CASE EVENT DATE: 20250101
